FAERS Safety Report 24093381 (Version 1)
Quarter: 2024Q3

REPORT INFORMATION
  Report Type: Spontaneous
  Country: US (occurrence: US)
  Receive Date: 20240715
  Receipt Date: 20240715
  Transmission Date: 20241017
  Serious: No
  Sender: FOUNDATION CONSUMER HEALTHCARE
  Company Number: US-FOUNDATIONCONSUMERHC-2024-US-020748

PATIENT
  Age: 35 Year
  Sex: Female
  Weight: 50.8 kg

DRUGS (4)
  1. TAKE ACTION [Suspect]
     Active Substance: LEVONORGESTREL
     Indication: Post coital contraception
     Dosage: 1.5MG
     Route: 048
     Dates: start: 20240405, end: 20240405
  2. PHENOBARBITAL [Concomitant]
     Active Substance: PHENOBARBITAL
  3. TOPIRAMATE [Concomitant]
     Active Substance: TOPIRAMATE
  4. LACOSAMIDE [Concomitant]
     Active Substance: LACOSAMIDE

REACTIONS (2)
  - Nausea [Recovered/Resolved]
  - Dysmenorrhoea [Not Recovered/Not Resolved]

NARRATIVE: CASE EVENT DATE: 20240406
